FAERS Safety Report 11610229 (Version 1)
Quarter: 2015Q4

REPORT INFORMATION
  Report Type: Report from Study
  Country: US (occurrence: US)
  Receive Date: 20151008
  Receipt Date: 20151008
  Transmission Date: 20160304
  Serious: Yes (Hospitalization, Other)
  Sender: FDA-Public Use
  Company Number: US-ABBVIE-15K-163-1475416-00

PATIENT
  Age: 70 Year
  Sex: Male

DRUGS (1)
  1. HUMIRA [Suspect]
     Active Substance: ADALIMUMAB
     Indication: COLITIS ULCERATIVE
     Route: 065
     Dates: start: 20150401, end: 20150916

REACTIONS (3)
  - Colectomy total [Not Recovered/Not Resolved]
  - Blindness [Not Recovered/Not Resolved]
  - Ophthalmic herpes zoster [Not Recovered/Not Resolved]

NARRATIVE: CASE EVENT DATE: 20150901
